FAERS Safety Report 18649331 (Version 1)
Quarter: 2020Q4

REPORT INFORMATION
  Report Type: Spontaneous
  Country: US (occurrence: US)
  Receive Date: 20201222
  Receipt Date: 20201222
  Transmission Date: 20210114
  Serious: Yes (Hospitalization)
  Sender: FDA-Public Use
  Company Number: None

PATIENT
  Age: 65 Year
  Sex: Male
  Weight: 107.3 kg

DRUGS (4)
  1. DICLOFENAC GEL 4X PER DAY [Concomitant]
     Dates: start: 20201210
  2. ATORVASTATIN 20MG DAILY [Concomitant]
     Dates: start: 20200601
  3. AMLODIPINE 10MG DAILY [Concomitant]
     Dates: start: 20200601
  4. BAMLANIVIMAB. [Suspect]
     Active Substance: BAMLANIVIMAB
     Indication: COVID-19
     Dosage: ?          OTHER FREQUENCY:ONCE;?
     Route: 042
     Dates: start: 20201215, end: 20201215

REACTIONS (4)
  - Alanine aminotransferase increased [None]
  - Intentional product use issue [None]
  - Aspartate aminotransferase increased [None]
  - Oxygen saturation decreased [None]

NARRATIVE: CASE EVENT DATE: 20201218
